FAERS Safety Report 5641878-3 (Version None)
Quarter: 2008Q1

REPORT INFORMATION
  Report Type: 
  Country: None (occurrence: None)
  Receive Date: 20080131
  Receipt Date: 20071114
  Transmission Date: 20080703
  Serious: No
  Sender: FDA-Public Use
  Company Number: 163-21880-07100757

PATIENT
  Age: 74 Year
  Sex: Male

DRUGS (7)
  1. REVLIMID [Suspect]
     Indication: MULTIPLE MYELOMA
     Dosage: 25 MG, QD X21 DAYS, ORAL
     Route: 048
     Dates: start: 20070817
  2. DEXAMETHASONE TAB [Concomitant]
  3. XANAX [Concomitant]
  4. ZOLPIDEM [Concomitant]
  5. CALCIUM (CALCIUM) [Concomitant]
  6. PEPCID [Concomitant]
  7. ZOCOR [Concomitant]

REACTIONS (4)
  - BACTERIAL INFECTION [None]
  - DYSPEPSIA [None]
  - DYSPNOEA [None]
  - HAEMOPTYSIS [None]
